FAERS Safety Report 5052028-9 (Version None)
Quarter: 2006Q3

REPORT INFORMATION
  Report Type: 
  Country: None (occurrence: None)
  Receive Date: 20060711
  Receipt Date: 20060630
  Transmission Date: 20061208
  Serious: Yes (Other)
  Sender: FDA-Public Use
  Company Number: GB-2006-014525

PATIENT
  Age: 36 Year
  Sex: Female
  Weight: 50 kg

DRUGS (2)
  1. MIRENA [Suspect]
     Dosage: 20 UG/DAY, CONT, INTRA-UTERINE
     Route: 015
     Dates: start: 20031201
  2. OMEPRAZOLE [Concomitant]

REACTIONS (5)
  - AXILLARY MASS [None]
  - DEPRESSION [None]
  - MENSTRUAL DISORDER [None]
  - MYOSITIS [None]
  - VAGINAL HAEMORRHAGE [None]
